FAERS Safety Report 13328833 (Version 1)
Quarter: 2017Q1

REPORT INFORMATION
  Report Type: Spontaneous
  Country: US (occurrence: US)
  Receive Date: 20170312
  Receipt Date: 20170312
  Transmission Date: 20170428
  Serious: Yes (Disabling, Other)
  Sender: FDA-Public Use
  Company Number: None

PATIENT
  Age: 32 Year
  Sex: Male
  Weight: 96.75 kg

DRUGS (1)
  1. SUBOXONE [Suspect]
     Active Substance: BUPRENORPHINE HYDROCHLORIDE\NALOXONE HYDROCHLORIDE
     Indication: DRUG WITHDRAWAL SYNDROME
     Dosage: QUANTITY:2 PATCH(ES);?
     Route: 048

REACTIONS (6)
  - Alopecia [None]
  - Fatigue [None]
  - Depression [None]
  - Hyperhidrosis [None]
  - Hypothyroidism [None]
  - Weight increased [None]

NARRATIVE: CASE EVENT DATE: 20131010
